FAERS Safety Report 5241911-7 (Version None)
Quarter: 2007Q1

REPORT INFORMATION
  Report Type: 
  Country: None (occurrence: None)
  Receive Date: 20070212
  Receipt Date: 20070212
  Transmission Date: 20070707
  Serious: Yes (Hospitalization)
  Sender: FDA-Public Use
  Company Number: None

PATIENT
  Sex: Male
  Weight: 68.856 kg

DRUGS (2)
  1. WARFARIN SODIUM [Suspect]
     Indication: SURGERY
     Dosage: 1.25 TU 2.5 ROW QHS PO
     Route: 048
     Dates: start: 20010101
  2. CLARITHROMYCIN [Suspect]
     Indication: INFECTION
     Dosage: 500MG Q12 PO
     Route: 048
     Dates: start: 20061025, end: 20061101

REACTIONS (2)
  - HAEMATURIA [None]
  - INTERNATIONAL NORMALISED RATIO INCREASED [None]
